FAERS Safety Report 12627636 (Version 2)
Quarter: 2016Q3

REPORT INFORMATION
  Report Type: Spontaneous
  Country: US (occurrence: US)
  Receive Date: 20160805
  Receipt Date: 20160808
  Transmission Date: 20161109
  Serious: Yes (Hospitalization, Other)
  Sender: FDA-Public Use
  Company Number: US-ABBVIE-16P-163-1689924-00

PATIENT
  Age: 64 Year
  Sex: Female
  Weight: 90.72 kg

DRUGS (4)
  1. VICODIN [Suspect]
     Active Substance: ACETAMINOPHEN\HYDROCODONE BITARTRATE
     Indication: PRODUCT USED FOR UNKNOWN INDICATION
     Route: 065
  2. ADVIL [Suspect]
     Active Substance: IBUPROFEN
     Indication: MUSCLE RELAXANT THERAPY
  3. VIMPAT [Suspect]
     Active Substance: LACOSAMIDE
     Indication: PRODUCT USED FOR UNKNOWN INDICATION
     Route: 065
  4. ADVIL [Suspect]
     Active Substance: IBUPROFEN
     Indication: HEADACHE
     Dosage: 2 IN AM, ONE AT NIGHT
     Route: 048
     Dates: start: 201512

REACTIONS (15)
  - Muscle spasms [Not Recovered/Not Resolved]
  - Pain [Unknown]
  - Product difficult to swallow [Unknown]
  - Ligament sprain [Unknown]
  - Abdominal discomfort [Unknown]
  - Head injury [Unknown]
  - Headache [Not Recovered/Not Resolved]
  - Seizure [Recovered/Resolved]
  - Visual impairment [Not Recovered/Not Resolved]
  - Heart rate increased [Unknown]
  - Muscle tightness [Not Recovered/Not Resolved]
  - Muscle spasms [Not Recovered/Not Resolved]
  - Drug effect incomplete [Unknown]
  - Choking [Unknown]
  - Seizure [Recovered/Resolved]

NARRATIVE: CASE EVENT DATE: 1998
